FAERS Safety Report 12800951 (Version 1)
Quarter: 2016Q4

REPORT INFORMATION
  Report Type: Report from Study
  Country: DE (occurrence: DE)
  Receive Date: 20161002
  Receipt Date: 20161002
  Transmission Date: 20170207
  Serious: Yes (Other)
  Sender: FDA-Public Use
  Company Number: DE-ROCHE-1832423

PATIENT
  Sex: Female

DRUGS (9)
  1. RANIBIZUMAB [Suspect]
     Active Substance: RANIBIZUMAB
     Dosage: 0.5 MG, 1X
     Route: 031
     Dates: start: 20160217
  2. RANIBIZUMAB [Suspect]
     Active Substance: RANIBIZUMAB
     Dosage: 0.5 MG, 1X
     Route: 031
     Dates: start: 20160420
  3. RANIBIZUMAB [Suspect]
     Active Substance: RANIBIZUMAB
     Indication: DIABETIC RETINAL OEDEMA
     Dosage: 0.5 MG, 1X
     Route: 031
     Dates: start: 20151223
  4. PREDNI-POS [Concomitant]
     Indication: PULMONARY TUBERCULOSIS
     Route: 065
  5. RANIBIZUMAB [Suspect]
     Active Substance: RANIBIZUMAB
     Dosage: 0.5 MG, 1X
     Route: 031
     Dates: start: 20160316
  6. RANIBIZUMAB [Suspect]
     Active Substance: RANIBIZUMAB
     Indication: VISUAL IMPAIRMENT
     Dosage: 1X
     Route: 031
     Dates: start: 20151118
  7. RANIBIZUMAB [Suspect]
     Active Substance: RANIBIZUMAB
     Dosage: 0.5 MG, 1X
     Route: 031
     Dates: start: 20160518, end: 20160518
  8. ATROPINE. [Concomitant]
     Active Substance: ATROPINE
     Indication: PULMONARY TUBERCULOSIS
     Dosage: LEFT EYE
     Route: 065
  9. RANIBIZUMAB [Suspect]
     Active Substance: RANIBIZUMAB
     Dosage: 0.5 MG, 1X
     Route: 031
     Dates: start: 20160120

REACTIONS (1)
  - Retinal thickening [Recovered/Resolved]

NARRATIVE: CASE EVENT DATE: 20160718
